FAERS Safety Report 6572970-7 (Version None)
Quarter: 2010Q1

REPORT INFORMATION
  Report Type: 
  Country: None (occurrence: None)
  Receive Date: 20100208
  Receipt Date: 20100128
  Transmission Date: 20100710
  Serious: Yes (Hospitalization)
  Sender: FDA-Public Use
  Company Number: US-BIOGENIDEC-2010BI002989

PATIENT
  Age: 45 Year
  Sex: Female
  Weight: 77 kg

DRUGS (2)
  1. AVONEX [Suspect]
     Indication: MULTIPLE SCLEROSIS
     Route: 030
     Dates: start: 20001101, end: 20041201
  2. AVONEX [Suspect]
     Route: 030
     Dates: start: 20090601

REACTIONS (2)
  - FALL [None]
  - FEMUR FRACTURE [None]
